FAERS Safety Report 14051598 (Version 2)
Quarter: 2017Q4

REPORT INFORMATION
  Report Type: Spontaneous
  Country: US (occurrence: US)
  Receive Date: 20171006
  Receipt Date: 20171017
  Transmission Date: 20180321
  Serious: Yes (Death, Hospitalization, Other)
  Sender: FDA-Public Use
  Company Number: US-AUROBINDO-AUR-APL-2017-41332

PATIENT
  Age: 49 Year
  Sex: Female

DRUGS (6)
  1. PREDNISONE. [Suspect]
     Active Substance: PREDNISONE
     Indication: IMMUNOSUPPRESSION
     Dosage: 60 MG, UNK
     Route: 065
  2. TACROLIMUS. [Suspect]
     Active Substance: TACROLIMUS
     Indication: IMMUNOSUPPRESSION
  3. METHYLPREDNISOLONE. [Suspect]
     Active Substance: METHYLPREDNISOLONE
     Indication: IMMUNOSUPPRESSION
  4. MYCOPHENOLATE MOFETIL. [Suspect]
     Active Substance: MYCOPHENOLATE MOFETIL
     Indication: IMMUNOSUPPRESSION
     Route: 065
  5. SIROLIMUS. [Suspect]
     Active Substance: SIROLIMUS
     Indication: IMMUNOSUPPRESSION
     Route: 065
  6. BELATACEPT [Suspect]
     Active Substance: BELATACEPT
     Indication: IMMUNOSUPPRESSION
     Dosage: 5 MG/KG, UNK
     Route: 065

REACTIONS (16)
  - Varicella zoster virus infection [Fatal]
  - Thrombocytosis [Unknown]
  - Tongue dry [Unknown]
  - Neck pain [Unknown]
  - Dyspnoea [Unknown]
  - Laryngeal oedema [Fatal]
  - Oropharyngeal pain [Unknown]
  - Dizziness [Unknown]
  - Blood creatinine increased [Unknown]
  - Ischaemic cerebral infarction [Fatal]
  - Metabolic acidosis [Unknown]
  - Interstitial lung disease [Fatal]
  - Leukocytosis [Unknown]
  - Toxicity to various agents [Unknown]
  - Pulmonary fibrosis [Fatal]
  - Respiratory distress [Unknown]
